FAERS Safety Report 16505760 (Version 1)
Quarter: 2019Q3

REPORT INFORMATION
  Report Type: Spontaneous
  Country: US (occurrence: US)
  Receive Date: 20190701
  Receipt Date: 20190701
  Transmission Date: 20191004
  Serious: No
  Sender: FDA-Public Use
  Company Number: US-BAUSCH-BL-2019-017408

PATIENT
  Age: 51 Year
  Sex: Female

DRUGS (4)
  1. ELIDEL [Suspect]
     Active Substance: PIMECROLIMUS
     Indication: SKIN DISORDER
     Route: 061
     Dates: start: 201904, end: 2019
  2. OLOPATADINE. [Concomitant]
     Active Substance: OLOPATADINE
     Indication: EYE PRURITUS
     Dosage: AS NEEDED
     Route: 047
  3. ELIDEL [Suspect]
     Active Substance: PIMECROLIMUS
     Route: 061
     Dates: start: 20190613
  4. ELIDEL [Suspect]
     Active Substance: PIMECROLIMUS
     Dosage: ONLY AT NIGHT; INTERMITTENTLY AND AS NEEDED
     Route: 061
     Dates: start: 2019, end: 20190609

REACTIONS (4)
  - Feeling hot [Unknown]
  - Skin disorder [Not Recovered/Not Resolved]
  - Product administered at inappropriate site [Unknown]
  - Symptom recurrence [Not Recovered/Not Resolved]

NARRATIVE: CASE EVENT DATE: 2019
